FAERS Safety Report 8956420 (Version 2)
Quarter: 2013Q1

REPORT INFORMATION
  Report Type: Spontaneous
  Country: FR (occurrence: FR)
  Receive Date: 20121210
  Receipt Date: 20130114
  Transmission Date: 20140127
  Serious: Yes (Life-Threatening)
  Sender: FDA-Public Use
  Company Number: FR-ASTRAZENECA-2012SE91920

PATIENT
  Age: 22262 Day
  Sex: Male
  Weight: 75 kg

DRUGS (7)
  1. BRILIQUE [Suspect]
     Indication: ACUTE CORONARY SYNDROME
     Route: 048
     Dates: start: 20121108
  2. KARDEGIC [Concomitant]
     Indication: DRESSLER^S SYNDROME
     Dates: start: 20121108
  3. TAHOR [Concomitant]
     Indication: DRESSLER^S SYNDROME
  4. BISOCE [Concomitant]
     Indication: DRESSLER^S SYNDROME
  5. JANUMET [Concomitant]
     Indication: RENAL TUBULAR ACIDOSIS
  6. DIAMICRON [Concomitant]
     Indication: TYPE 2 DIABETES MELLITUS
  7. LEVEMIR [Concomitant]
     Indication: TYPE 2 DIABETES MELLITUS

REACTIONS (2)
  - Thrombosis in device [Recovered/Resolved]
  - Acute myocardial infarction [Recovered/Resolved]
